FAERS Safety Report 5971079 (Version 15)
Quarter: 2013Q2

REPORT INFORMATION
  Report Type: Spontaneous
  Country: US (occurrence: US)
  Receive Date: 20060127
  Receipt Date: 20130605
  Transmission Date: 20140414
  Serious: Yes (Other)
  Sender: FDA-Public Use
  Company Number: PHEH2006US01238

PATIENT
  Age: 58 Year
  Sex: Male
  Weight: 111.57 kg

DRUGS (14)
  1. ZOMETA [Suspect]
     Indication: METASTASES TO BONE
     Dosage: 4 MG, QMO
     Route: 042
     Dates: start: 200405, end: 20051117
  2. LIDOCAINE [Concomitant]
  3. LUPRON [Concomitant]
     Indication: PROSTATE CANCER
     Dosage: 22.5 MG, Q3MONTHS
  4. DOCETAXEL [Concomitant]
  5. ALPHAGAN P [Concomitant]
  6. TRAVOPROST [Concomitant]
  7. MOTRIN [Concomitant]
     Dosage: 200 MG, QD
  8. VITAMIN B1 W/VITAMIN B12 NOS/VITAMIN B6 [Concomitant]
  9. CENTRUM SILVER [Concomitant]
  10. TAXOL(DEXITAXOL TAXOL) [Concomitant]
     Indication: CHEMOTHERAPY
     Dosage: 120 MG, Q4WEEKS
     Route: 042
     Dates: start: 200405
  11. DEXAMETHASONE [Concomitant]
  12. PREDNISONE [Concomitant]
  13. TAXOTERE [Concomitant]
     Dates: start: 200405
  14. ATIVAN [Concomitant]
     Dosage: 1 MG, Q8H
     Route: 048
     Dates: start: 20080222

REACTIONS (58)
  - Osteonecrosis of jaw [Unknown]
  - X-ray abnormal [Unknown]
  - Tooth erosion [Unknown]
  - Tooth disorder [Unknown]
  - Device failure [Unknown]
  - Pain in jaw [Unknown]
  - Implant site swelling [Unknown]
  - Gingival pain [Unknown]
  - Positron emission tomogram abnormal [Unknown]
  - Oral pain [Unknown]
  - Gingival swelling [Unknown]
  - Osteomyelitis [Unknown]
  - Biopsy bone abnormal [Unknown]
  - Primary sequestrum [Unknown]
  - Paraesthesia oral [Unknown]
  - Lip swelling [Unknown]
  - Bone lesion [Unknown]
  - Exposed bone in jaw [Not Recovered/Not Resolved]
  - Loose tooth [Unknown]
  - Biopsy [Unknown]
  - Impaired healing [Unknown]
  - Soft tissue injury [Unknown]
  - Interstitial lung disease [Unknown]
  - Chest X-ray abnormal [Unknown]
  - Lymphadenopathy [Unknown]
  - Diverticulum [Unknown]
  - Haemorrhoids [Unknown]
  - Colonoscopy [Unknown]
  - Osteitis deformans [Unknown]
  - Rib fracture [Unknown]
  - Injection site extravasation [Unknown]
  - Osteoarthritis [Unknown]
  - Hypoacusis [Unknown]
  - Scrotal oedema [Unknown]
  - Oedema peripheral [Unknown]
  - Cellulitis [Recovered/Resolved]
  - Azotaemia [Unknown]
  - Chest pain [Unknown]
  - Renal failure [Unknown]
  - Haematuria [Unknown]
  - Spinal osteoarthritis [Unknown]
  - Gynaecomastia [Unknown]
  - Atelectasis [Unknown]
  - Deafness [Unknown]
  - Erectile dysfunction [Unknown]
  - Pelvic pain [Unknown]
  - Groin pain [Unknown]
  - Lung infiltration [Unknown]
  - Osteolysis [Unknown]
  - Mass [Unknown]
  - Blister [Unknown]
  - Micturition urgency [Unknown]
  - Depressed mood [Unknown]
  - Neoplasm [Unknown]
  - Generalised oedema [Unknown]
  - Fatigue [Unknown]
  - Dyspnoea [Unknown]
  - Pain [Unknown]
